FAERS Safety Report 18535611 (Version 1)
Quarter: 2020Q4

REPORT INFORMATION
  Report Type: Spontaneous
  Country: IT (occurrence: IT)
  Receive Date: 20201123
  Receipt Date: 20201123
  Transmission Date: 20210114
  Serious: Yes (Hospitalization)
  Sender: FDA-Public Use
  Company Number: NVSC2020IT296425

PATIENT
  Age: 58 Year
  Sex: Male

DRUGS (2)
  1. MUSCORIL [Concomitant]
     Active Substance: THIOCOLCHICOSIDE
     Indication: MUSCLE RELAXANT THERAPY
     Dosage: 2 ML (1 AS NECESSARY)
     Route: 065
     Dates: start: 20200921, end: 20200921
  2. VOLTAREN [Suspect]
     Active Substance: DICLOFENAC SODIUM
     Indication: ANTIINFLAMMATORY THERAPY
     Dosage: 3 ML (1 AS NECESSARY)
     Route: 065
     Dates: start: 20200921

REACTIONS (5)
  - Presyncope [Recovered/Resolved]
  - Loss of consciousness [Recovered/Resolved]
  - Urticaria [Recovered/Resolved]
  - Pruritus [Recovered/Resolved]
  - Angioedema [Recovered/Resolved]

NARRATIVE: CASE EVENT DATE: 20200921
